FAERS Safety Report 7218516-1 (Version None)
Quarter: 2011Q1

REPORT INFORMATION
  Report Type: 
  Country: None (occurrence: None)
  Receive Date: 20110110
  Receipt Date: 20110105
  Transmission Date: 20110831
  Serious: Yes (Other)
  Sender: FDA-Public Use
  Company Number: US-CEPHALON-2011000088

PATIENT
  Sex: Male

DRUGS (4)
  1. TREANDA [Suspect]
     Indication: NODAL MARGINAL ZONE B-CELL LYMPHOMA
     Route: 041
     Dates: start: 20101201
  2. PREDNISONE [Concomitant]
  3. RITUXAN [Concomitant]
     Indication: NODAL MARGINAL ZONE B-CELL LYMPHOMA
     Route: 042
     Dates: start: 20101201
  4. ALLOPURINOL [Concomitant]
     Dates: start: 20101201

REACTIONS (2)
  - RASH MACULO-PAPULAR [None]
  - PRURITUS [None]
